FAERS Safety Report 23937641 (Version 1)
Quarter: 2024Q2

REPORT INFORMATION
  Report Type: Report from Study
  Country: DE (occurrence: DE)
  Receive Date: 20240604
  Receipt Date: 20240604
  Transmission Date: 20240716
  Serious: Yes (Other)
  Sender: FDA-Public Use
  Company Number: DE-CELLTRION HEALTHCARE HUNGARY KFT-2021DE006627

PATIENT
  Age: 57 Year
  Sex: Female
  Weight: 59 kg

DRUGS (23)
  1. ZOLEDRONIC ACID [Suspect]
     Active Substance: ZOLEDRONIC ACID
     Indication: Metastases to bone
     Dosage: UNK UNK, Q28D (DATE OF LAST DOSE (4 MG) APPLICATION PRIOR EVENT: 16-DEC-2020)
     Route: 065
     Dates: start: 20201118
  2. ZOLEDRONIC ACID [Suspect]
     Active Substance: ZOLEDRONIC ACID
     Dosage: SECOND DOSE
     Route: 065
     Dates: start: 20201216
  3. ZOLEDRONIC ACID [Suspect]
     Active Substance: ZOLEDRONIC ACID
     Dosage: THIRD DOSE
     Route: 065
     Dates: start: 20210131
  4. KANJINTI [Suspect]
     Active Substance: TRASTUZUMAB-ANNS
     Indication: Breast cancer
     Dosage: 336 MILLIGRAM
     Route: 042
     Dates: start: 20201210, end: 20210328
  5. KANJINTI [Suspect]
     Active Substance: TRASTUZUMAB-ANNS
     Dosage: 336 MILLIGRAM
     Route: 042
     Dates: start: 20210518
  6. DOCETAXEL [Suspect]
     Active Substance: DOCETAXEL\DOCETAXEL ANHYDROUS
     Indication: Breast cancer
     Dosage: 120 MG (DATE OF LAST DOSE (118 MG) APPLICATION PRIOR EVENT 10-DEC-2020)
     Route: 065
     Dates: start: 20201118, end: 20210104
  7. PERTUZUMAB [Suspect]
     Active Substance: PERTUZUMAB
     Indication: Breast cancer
     Dosage: 420 MILLIGRAM (DATE OF DOSE LAST APPLICATION PRIOR EVENT: 10-DEC-2020 DATE OF DOSE LAST APPLICATION)
     Route: 065
     Dates: start: 20201210, end: 20210328
  8. PERTUZUMAB [Suspect]
     Active Substance: PERTUZUMAB
     Dosage: 420 MILLIGRAM (DATE OF MOST RECENT DOSE PRIOR TO AE 20-JUL-2021)
     Route: 065
     Dates: start: 20210518
  9. TRASTUZUMAB [Suspect]
     Active Substance: TRASTUZUMAB
     Indication: Breast cancer
     Dosage: 336 MILLIGRAM(DATE OF LAST DOSE APPLICATION PRIOR EVENT: 10-DEC-2020 DATE OF LAST DOSE APPLICATION)
     Route: 042
     Dates: start: 20201210, end: 20210328
  10. TRASTUZUMAB [Suspect]
     Active Substance: TRASTUZUMAB
     Dosage: 336 MILLIGRAM (DATE OF MOST RECENT DOSE PRIOR TO AE 20-JUL-2021: 326 MG)
     Route: 042
     Dates: start: 20210518
  11. RITUXIMAB [Suspect]
     Active Substance: RITUXIMAB
     Indication: Breast cancer
     Dosage: 336 MILLIGRAM
     Route: 065
  12. CALCIUM\CHOLECALCIFEROL [Concomitant]
     Active Substance: CALCIUM\CHOLECALCIFEROL
     Dosage: 400 INTERNATIONAL UNIT, QD
     Route: 048
     Dates: start: 20201118
  13. CALCIUM\CHOLECALCIFEROL [Concomitant]
     Active Substance: CALCIUM\CHOLECALCIFEROL
     Dosage: CALCIUM 500 MG / VITAMIN D 400 IU DAILY
     Route: 048
     Dates: start: 20201118
  14. DIMETHINDENE MALEATE [Concomitant]
     Active Substance: DIMETHINDENE MALEATE
     Dosage: 4 MILLIGRAM
     Route: 042
     Dates: start: 20201118, end: 20210104
  15. ELIQUIS [Concomitant]
     Active Substance: APIXABAN
     Dosage: 5 MILLIGRAM, BID
     Route: 048
     Dates: start: 20210709
  16. BEPANTHEN AUGEN- UND NASENSALBE [Concomitant]
     Dosage: UNK
     Route: 061
     Dates: start: 20210622
  17. Novalgin [Concomitant]
     Dosage: 500 MILLIGRAM
     Route: 048
     Dates: start: 20210104, end: 20210109
  18. Gynomunal [Concomitant]
     Dosage: 2.5 MILLIGRAM
     Route: 061
     Dates: start: 20210208, end: 20210222
  19. OMEPRAZOLE [Concomitant]
     Active Substance: DONEPEZIL HYDROCHLORIDE\OMEPRAZOLE\OMEPRAZOLE MAGNESIUM
     Dosage: 20 MILLIGRAM
     Route: 048
     Dates: start: 20210104, end: 20210109
  20. SEA SALT [Concomitant]
     Active Substance: SEA SALT
     Dosage: UNK UNK, BID (0.5 DAILY)
     Route: 045
     Dates: start: 20211026
  21. DEXAMETHASONE [Concomitant]
     Active Substance: DEXAMETHASONE
     Dosage: 8 MILLIGRAM
     Route: 042
     Dates: start: 20201118, end: 20210104
  22. DEXAMETHASONE [Concomitant]
     Active Substance: DEXAMETHASONE
     Dosage: 32 MILLIGRAM
     Route: 048
     Dates: start: 20201117, end: 20210106
  23. BISOPROLOL [Concomitant]
     Active Substance: BISOPROLOL\BISOPROLOL FUMARATE
     Dosage: 2.5 MILLIGRAM, BID
     Route: 048
     Dates: start: 20210709

REACTIONS (10)
  - Osteochondrosis [Not Recovered/Not Resolved]
  - Atrial fibrillation [Recovered/Resolved]
  - Dry skin [Not Recovered/Not Resolved]
  - Left ventricular dysfunction [Recovered/Resolved]
  - Underdose [Unknown]
  - Vulvovaginal dryness [Recovered/Resolved]
  - Dysgeusia [Recovered/Resolved]
  - Abdominal pain upper [Recovered/Resolved]
  - Back pain [Not Recovered/Not Resolved]
  - Anaemia [Recovered/Resolved]

NARRATIVE: CASE EVENT DATE: 20201217
